FAERS Safety Report 16939829 (Version 1)
Quarter: 2019Q4

REPORT INFORMATION
  Report Type: Other
  Country: US (occurrence: US)
  Receive Date: 20191021
  Receipt Date: 20191021
  Transmission Date: 20200122
  Serious: Yes (Life-Threatening, Hospitalization)
  Sender: FDA-Public Use
  Company Number: US-US-PROVELL PHARMACEUTICALS LLC-9122066

PATIENT
  Age: 23 Year
  Sex: Male

DRUGS (3)
  1. AMLODIPINE [Suspect]
     Active Substance: AMLODIPINE BESYLATE
     Indication: SUICIDE ATTEMPT
     Dosage: TOOK MORE THAN ONE HUNDRED TABLETS
  2. MECLIZINE [Suspect]
     Active Substance: MECLIZINE HYDROCHLORIDE
     Indication: SUICIDE ATTEMPT
     Dosage: UNSPECIFIED NUMBER
  3. LEVOTHYROXINE. [Suspect]
     Active Substance: LEVOTHYROXINE
     Indication: SUICIDE ATTEMPT
     Dosage: UNSPECIFIED NUMBER

REACTIONS (5)
  - Hypotension [Recovering/Resolving]
  - Tachycardia [Recovering/Resolving]
  - Pulmonary oedema [Recovering/Resolving]
  - Suicide attempt [Unknown]
  - Intentional overdose [Unknown]
